FAERS Safety Report 19683686 (Version 3)
Quarter: 2021Q3

REPORT INFORMATION
  Report Type: Report from Study
  Country: CA (occurrence: CA)
  Receive Date: 20210810
  Receipt Date: 20210826
  Transmission Date: 20211014
  Serious: Yes (Hospitalization)
  Sender: FDA-Public Use
  Company Number: CA-JNJFOC-20210811606

PATIENT
  Age: 71 Year
  Sex: Male

DRUGS (1)
  1. REMICADE [Suspect]
     Active Substance: INFLIXIMAB
     Indication: CROHN^S DISEASE
     Route: 042

REACTIONS (5)
  - Cardiac operation [Unknown]
  - Herpes zoster [Recovered/Resolved]
  - Fall [Unknown]
  - Haemoglobin decreased [Unknown]
  - Hypotension [Unknown]

NARRATIVE: CASE EVENT DATE: 2021
